FAERS Safety Report 19687663 (Version 2)
Quarter: 2021Q4

REPORT INFORMATION
  Report Type: Spontaneous
  Country: JP (occurrence: JP)
  Receive Date: 20210811
  Receipt Date: 20211115
  Transmission Date: 20220303
  Serious: Yes (Other)
  Sender: FDA-Public Use
  Company Number: JP-AMERICAN REGENT INC-2021001525

PATIENT
  Age: 41 Year
  Sex: Female
  Weight: 58 kg

DRUGS (3)
  1. FERINJECT [Suspect]
     Active Substance: FERRIC CARBOXYMALTOSE
     Indication: Iron deficiency anaemia
     Dosage: 500 MG
     Dates: start: 20210522, end: 20210522
  2. ESTRADIOL BENZOATE W/HYDROXYPROGESTERONE CAPR [Concomitant]
     Indication: Heavy menstrual bleeding
     Dosage: UNK
     Route: 030
     Dates: start: 20210511
  3. ESTRADIOL BENZOATE W/HYDROXYPROGESTERONE CAPR [Concomitant]
     Indication: Anaemia

REACTIONS (1)
  - Anaphylactic shock [Recovered/Resolved]

NARRATIVE: CASE EVENT DATE: 20210522
